FAERS Safety Report 8817097 (Version 1)
Quarter: 2012Q4

REPORT INFORMATION
  Report Type: Spontaneous
  Country: None (occurrence: None)
  Receive Date: 20121002
  Receipt Date: 20121002
  Transmission Date: 20130627
  Serious: Yes (Other)
  Sender: FDA-Public Use
  Company Number: AUR-APL-2012-04100

PATIENT
  Age: 49 Year
  Sex: Female
  Weight: 103.4 kg

DRUGS (3)
  1. AMLODIPINE (AMLODIPINE) [Suspect]
     Indication: HYPERTENSION
     Route: 048
     Dates: start: 20120806, end: 20120902
  2. JANUVIA [Concomitant]
  3. METFORMIN (METFORMIN) [Concomitant]

REACTIONS (8)
  - Decreased appetite [None]
  - Dizziness [None]
  - Fatigue [None]
  - Malaise [None]
  - Flushing [None]
  - Asthenia [None]
  - Disorientation [None]
  - Confusional state [None]
